FAERS Safety Report 21500033 (Version 2)
Quarter: 2022Q4

REPORT INFORMATION
  Report Type: Spontaneous
  Country: JP (occurrence: JP)
  Receive Date: 20221024
  Receipt Date: 20221130
  Transmission Date: 20230113
  Serious: Yes (Other)
  Sender: FDA-Public Use
  Company Number: JP-PFIZER INC-PV202200087027

PATIENT
  Age: 43 Year
  Sex: Male
  Weight: 76 kg

DRUGS (1)
  1. RITUXIMAB [Suspect]
     Active Substance: RITUXIMAB
     Dosage: THE TOTAL DOSAGE  ADMINISTERED 700 MG
     Dates: start: 20221020

REACTIONS (6)
  - Infusion related reaction [Recovering/Resolving]
  - Obstructive airways disorder [Recovering/Resolving]
  - Oxygen saturation decreased [Recovering/Resolving]
  - Respiratory disorder [Recovering/Resolving]
  - Flushing [Recovering/Resolving]
  - Pruritus [Recovering/Resolving]

NARRATIVE: CASE EVENT DATE: 20221020
